FAERS Safety Report 6505611-5 (Version None)
Quarter: 2009Q4

REPORT INFORMATION
  Report Type: 
  Country: None (occurrence: None)
  Receive Date: 20091217
  Receipt Date: 20091217
  Transmission Date: 20100525
  Serious: No
  Sender: FDA-Public Use
  Company Number: None

PATIENT
  Age: 58 Year
  Sex: Female
  Weight: 61.6892 kg

DRUGS (1)
  1. COMBIVENT [Suspect]
     Indication: ASTHMA
     Dosage: 2 PUFFS QID INHAL
     Route: 055
     Dates: start: 20091114, end: 20091120

REACTIONS (4)
  - CEREBROVASCULAR ACCIDENT [None]
  - DRUG TOXICITY [None]
  - DRY MOUTH [None]
  - FEELING ABNORMAL [None]
